FAERS Safety Report 7240728-1 (Version None)
Quarter: 2011Q1

REPORT INFORMATION
  Report Type: 
  Country: None (occurrence: None)
  Receive Date: 20110124
  Receipt Date: 20110117
  Transmission Date: 20110831
  Serious: Yes (Life-Threatening)
  Sender: FDA-Public Use
  Company Number: BR-US-EMD SERONO, INC.-7036739

PATIENT
  Sex: Female

DRUGS (1)
  1. REBIF [Suspect]
     Indication: RELAPSING-REMITTING MULTIPLE SCLEROSIS
     Dates: start: 20090708, end: 20100701

REACTIONS (3)
  - DEPRESSION [None]
  - NERVOUSNESS [None]
  - SUICIDE ATTEMPT [None]
